FAERS Safety Report 7416235-X (Version None)
Quarter: 2011Q2

REPORT INFORMATION
  Report Type: 
  Country: None (occurrence: None)
  Receive Date: 20110406
  Receipt Date: 20110322
  Transmission Date: 20111010
  Serious: Yes (Hospitalization, Other)
  Sender: FDA-Public Use
  Company Number: 2011MA002741

PATIENT
  Age: 15 Month
  Sex: Female

DRUGS (1)
  1. FERROUS SUL ELX [Suspect]
     Dosage: 525 MG;1X;PO
     Route: 048

REACTIONS (6)
  - ACCIDENTAL POISONING [None]
  - BLOOD IRON INCREASED [None]
  - BLOOD GLUCOSE INCREASED [None]
  - METABOLIC ACIDOSIS [None]
  - ACCIDENTAL EXPOSURE [None]
  - WHITE BLOOD CELL COUNT INCREASED [None]
